FAERS Safety Report 18188634 (Version 3)
Quarter: 2020Q3

REPORT INFORMATION
  Report Type: Report from Study
  Country: BE (occurrence: BE)
  Receive Date: 20200824
  Receipt Date: 20200903
  Transmission Date: 20201103
  Serious: Yes (Death, Hospitalization, Other)
  Sender: FDA-Public Use
  Company Number: BE-BRISTOL-MYERS SQUIBB COMPANY-BMS-2020-058279

PATIENT
  Age: 68 Year
  Sex: Female

DRUGS (1)
  1. NIVOLUMAB [Suspect]
     Active Substance: NIVOLUMAB
     Indication: MALIGNANT MELANOMA
     Dosage: 240 MILLIGRAM, Q2WK
     Route: 042
     Dates: start: 20191011, end: 20191025

REACTIONS (3)
  - Myocarditis [Unknown]
  - Myositis [Unknown]
  - Malignant neoplasm progression [Fatal]

NARRATIVE: CASE EVENT DATE: 20191031
